FAERS Safety Report 14665084 (Version 1)
Quarter: 2018Q1

REPORT INFORMATION
  Report Type: Spontaneous
  Country: RU (occurrence: RU)
  Receive Date: 20180321
  Receipt Date: 20180321
  Transmission Date: 20180509
  Serious: Yes (Other)
  Sender: FDA-Public Use
  Company Number: RU-CELGENEUS-RUS-20180302914

PATIENT

DRUGS (3)
  1. AZACITIDINE. [Suspect]
     Active Substance: AZACITIDINE
     Indication: NEUROBLASTOMA
     Dosage: 75 MILLIGRAM/SQ. METER
     Route: 058
  2. TREOSULFAN [Concomitant]
     Active Substance: TREOSULFAN
     Indication: NEUROBLASTOMA
     Dosage: 10000 MILLIGRAM/SQ. METER
     Route: 065
  3. MELPHALAN. [Concomitant]
     Active Substance: MELPHALAN
     Indication: NEUROBLASTOMA
     Dosage: 70 MILLIGRAM/SQ. METER
     Route: 065

REACTIONS (8)
  - Dyspepsia [Unknown]
  - Haemorrhage [Unknown]
  - Hepatotoxicity [Unknown]
  - Stomatitis [Unknown]
  - Dysphagia [Unknown]
  - Febrile neutropenia [Unknown]
  - Oral mucosal erythema [Unknown]
  - Diarrhoea [Unknown]
